FAERS Safety Report 10920691 (Version 1)
Quarter: 2015Q1

REPORT INFORMATION
  Report Type: Spontaneous
  Country: US (occurrence: None)
  Receive Date: 20150312
  Receipt Date: 20150312
  Transmission Date: 20150721
  Serious: Yes (Other)
  Sender: FDA-Public Use
  Company Number: None

PATIENT
  Age: 27 Year
  Sex: Male
  Weight: 77.11 kg

DRUGS (1)
  1. TREANDA [Suspect]
     Active Substance: BENDAMUSTINE HYDROCHLORIDE
     Indication: OCCUPATIONAL EXPOSURE TO PRODUCT
     Dates: start: 20150204, end: 20150305

REACTIONS (6)
  - Nausea [None]
  - Confusional state [None]
  - Respiratory tract inflammation [None]
  - Respiratory tract irritation [None]
  - Fatigue [None]
  - Dizziness [None]

NARRATIVE: CASE EVENT DATE: 20150204
